FAERS Safety Report 8956357 (Version 2)
Quarter: 2013Q1

REPORT INFORMATION
  Report Type: Spontaneous
  Country: US (occurrence: US)
  Receive Date: 20121210
  Receipt Date: 20130122
  Transmission Date: 20140127
  Serious: No
  Sender: FDA-Public Use
  Company Number: US-ASTRAZENECA-2005UW11716

PATIENT
  Age: 74 Year
  Sex: Female
  Weight: 64 kg

DRUGS (5)
  1. TOPROL XL [Suspect]
     Indication: VENTRICULAR EXTRASYSTOLES
     Route: 048
     Dates: start: 200508
  2. SYMBICORT PMDI [Suspect]
     Indication: CHRONIC OBSTRUCTIVE PULMONARY DISEASE
     Dosage: 160/4.5MCG,2 PUFFS TWICE DAILY
     Route: 055
  3. CLARITIN [Concomitant]
  4. ZETIA [Concomitant]
  5. LORATIDINE [Concomitant]
     Route: 048

REACTIONS (2)
  - Vitreous floaters [Unknown]
  - Dyspnoea [Not Recovered/Not Resolved]
